FAERS Safety Report 24675143 (Version 1)
Quarter: 2024Q4

REPORT INFORMATION
  Report Type: Spontaneous
  Country: DE (occurrence: DE)
  Receive Date: 20241128
  Receipt Date: 20241128
  Transmission Date: 20250114
  Serious: Yes (Death, Hospitalization, Other)
  Sender: SANDOZ
  Company Number: None

PATIENT
  Sex: Female

DRUGS (74)
  1. CYCLOPHOSPHAMIDE [Suspect]
     Active Substance: CYCLOPHOSPHAMIDE
     Indication: B-cell lymphoma
     Dosage: START DATE; 27-SEP-2016; LAST CYCLE: 28/OCT/2016
     Route: 042
     Dates: end: 20161124
  2. CYCLOPHOSPHAMIDE [Suspect]
     Active Substance: CYCLOPHOSPHAMIDE
     Dosage: 1185 MG
     Route: 065
  3. DOXORUBICIN [Suspect]
     Active Substance: DOXORUBICIN
     Indication: B-cell lymphoma
     Dosage: START DATE: 27-SEP-2016; LAST CYCLE: 28/OCT/2016
     Route: 042
     Dates: end: 20161124
  4. DOXORUBICIN [Suspect]
     Active Substance: DOXORUBICIN
     Dosage: 79 MG
     Route: 065
  5. FILGRASTIM [Suspect]
     Active Substance: FILGRASTIM
     Indication: B-cell lymphoma
     Dosage: STRAT DATE :31-OCT-2016; 30 MIO IE
     Route: 058
     Dates: end: 20161107
  6. FILGRASTIM [Suspect]
     Active Substance: FILGRASTIM
     Dosage: START DATE: 27-NOV-2016; 30 MIO IE  QD
     Route: 058
  7. LENOGRASTIM [Suspect]
     Active Substance: LENOGRASTIM
     Indication: B-cell lymphoma
     Dosage: START DATE: 19-OCT-2016; 34 MIO IE
     Route: 058
  8. LENOGRASTIM [Suspect]
     Active Substance: LENOGRASTIM
     Dosage: START DATE: 19-OCT-2016; 34 MIO IE
     Route: 058
  9. NEULASTA [Suspect]
     Active Substance: PEGFILGRASTIM
     Indication: B-cell lymphoma
     Dosage: START DATE: 14-OCT-2016 ; DATE LAST CYCLE OF CHLIP STARTED PRIOR TO SAE: 12/OCT/2016
     Route: 058
  10. NEULASTA [Suspect]
     Active Substance: PEGFILGRASTIM
     Dosage: UNK
     Route: 065
  11. PEGFILGRASTIM [Suspect]
     Active Substance: PEGFILGRASTIM
     Indication: B-cell lymphoma
     Dosage: START DATE : 14-OCT-2016; DAILY DOSE: 6 MG MILLGRAM(S) EVERY 2 WEEKS
     Route: 058
  12. PREDNISONE [Suspect]
     Active Substance: PREDNISONE
     Indication: B-cell lymphoma
     Dosage: START DATE: 07-SEP-2016; LAST CYCLE: 28/OCT/2016
     Route: 048
     Dates: end: 20161128
  13. PREDNISONE [Suspect]
     Active Substance: PREDNISONE
     Dosage: 2500 MG
     Route: 065
  14. RITUXIMAB [Suspect]
     Active Substance: RITUXIMAB
     Indication: B-cell lymphoma
     Dosage: START DATE: 26-SEP-2016 ; MOST RECENT CYCLE NUMBER: 3, SUBSEQUENT RITUXIMAB DOSE GIVEN PRIOR TO SAE:
     Route: 042
  15. RITUXIMAB [Suspect]
     Active Substance: RITUXIMAB
     Dosage: UNK
     Route: 065
  16. VINCRISTINE [Suspect]
     Active Substance: VINCRISTINE
     Indication: B-cell lymphoma
     Dosage: START DATE: 27-SEP-2016 ; DATE LAST CYCLE OF CHLIP STARTED PRIOR TO SAE: 12.10.16 LAST CYCLE: 28/OCT
     Route: 042
     Dates: end: 20161124
  17. ACYCLOVIR [Concomitant]
     Active Substance: ACYCLOVIR
     Dosage: 1600 MG, QD
     Route: 048
     Dates: start: 20161027
  18. ACYCLOVIR [Concomitant]
     Active Substance: ACYCLOVIR
     Indication: Infection prophylaxis
     Dosage: 400 MILLIGRAM, BID
     Route: 048
     Dates: start: 20161027
  19. ALLEVYN [Concomitant]
     Indication: Skin ulcer
     Dosage: QD
     Route: 065
     Dates: start: 20161115
  20. ALLEVYN [Concomitant]
     Dosage: QD
     Route: 065
     Dates: start: 20161115
  21. ALLEVYN [Concomitant]
     Dosage: QD
     Route: 065
     Dates: start: 20161115
  22. ALLEVYN [Concomitant]
     Dosage: QD
     Route: 065
     Dates: start: 20161115
  23. ALLEVYN [Concomitant]
     Dosage: QD
     Route: 065
     Dates: start: 20161115
  24. ALLOPURINOL [Concomitant]
     Active Substance: ALLOPURINOL
     Dosage: 300 MG, QD
     Route: 048
     Dates: start: 20160906
  25. ALLOPURINOL [Concomitant]
     Active Substance: ALLOPURINOL
     Indication: Prophylaxis
     Dosage: 300 MILLIGRAM, QD
     Route: 048
     Dates: start: 20161114
  26. ALLOPURINOL [Concomitant]
     Active Substance: ALLOPURINOL
     Dosage: 7800 MG
     Route: 065
  27. ALLOPURINOL [Concomitant]
     Active Substance: ALLOPURINOL
     Dosage: UNK
     Route: 065
  28. AMPHOTERICIN B [Concomitant]
     Active Substance: AMPHOTERICIN B
     Indication: Infection prophylaxis
     Dosage: 1 PIPETTE
     Route: 048
     Dates: start: 20161017
  29. AMPICILLIN [Concomitant]
     Active Substance: AMPICILLIN
     Indication: Infection prophylaxis
     Dosage: DAILY DOSE: 1500 MG MILLIGRAM(S) EVERY DAY
     Route: 048
     Dates: start: 20160913
  30. CHOLECALCIFEROL [Concomitant]
     Active Substance: CHOLECALCIFEROL
     Indication: Vitamin supplementation
     Dosage: 20000IE, 1-0-0, ONLY FRIDAY
     Route: 048
     Dates: start: 20161027
  31. DEXPANTHENOL [Concomitant]
     Active Substance: DEXPANTHENOL
     Indication: Skin ulcer
     Dosage: PRN ATLEAST BID
     Route: 062
     Dates: start: 20161114
  32. DULOXETINE [Concomitant]
     Active Substance: DULOXETINE
     Indication: Depression
     Dosage: DAILY DOSE: 90 MG MILLIGRAM(S) EVERY DAY
     Route: 048
     Dates: start: 20160901
  33. ENOXAPARIN SODIUM [Concomitant]
     Active Substance: ENOXAPARIN SODIUM
     Indication: Thrombosis prophylaxis
     Dosage: DAILY DOSE: 5 ML MILLILITRE(S) EVERY DAY
     Route: 058
     Dates: start: 20160907, end: 20160929
  34. ENOXAPARIN SODIUM [Concomitant]
     Active Substance: ENOXAPARIN SODIUM
     Dosage: UNK
     Route: 065
  35. FOLIC ACID [Concomitant]
     Active Substance: FOLIC ACID
     Indication: Prophylaxis
     Dosage: 5 MILLIGRAM, 2 TIMES/WK
     Route: 048
     Dates: start: 20161027
  36. FOLIC ACID [Concomitant]
     Active Substance: FOLIC ACID
     Dosage: 5 MG 1-0-0, ONLY MO+THU
     Route: 048
  37. FUROSEMIDE [Concomitant]
     Active Substance: FUROSEMIDE
     Indication: Fluid retention
     Dosage: 2040 MILLIGRAM, AS NECESSARY (2040 MILLIGRAM, FOR 10 DAYS)
     Route: 042
     Dates: start: 20161116, end: 20161125
  38. LEVOFLOXACIN [Concomitant]
     Active Substance: LEVOFLOXACIN
     Indication: Product used for unknown indication
     Dosage: 2500 MG
     Route: 065
  39. LEVOFLOXACIN [Concomitant]
     Active Substance: LEVOFLOXACIN
     Dosage: UNK
     Route: 065
  40. POLYETHYLENE GLYCOLS [Concomitant]
     Active Substance: POLYETHYLENE GLYCOLS
     Indication: Constipation
     Dosage: 1-1-0 BAGS
     Route: 048
     Dates: start: 20161117
  41. METOCLOPRAMIDE [Concomitant]
     Active Substance: METOCLOPRAMIDE
     Indication: Nausea
     Dosage: 10.000MG
     Route: 065
  42. METOCLOPRAMIDE [Concomitant]
     Active Substance: METOCLOPRAMIDE
     Dosage: 10.000MG
     Route: 065
  43. METOCLOPRAMIDE [Concomitant]
     Active Substance: METOCLOPRAMIDE
     Dosage: 10.000MG
     Route: 065
  44. METOCLOPRAMIDE [Concomitant]
     Active Substance: METOCLOPRAMIDE
     Dosage: 10.000MG
     Route: 065
  45. METOCLOPRAMIDE [Concomitant]
     Active Substance: METOCLOPRAMIDE
     Dosage: 10.000MG
     Route: 065
  46. METOCLOPRAMIDE [Concomitant]
     Active Substance: METOCLOPRAMIDE
     Dosage: 10.000MG
     Route: 065
  47. METOCLOPRAMIDE [Concomitant]
     Active Substance: METOCLOPRAMIDE
     Dosage: 10.000MG
     Route: 065
  48. METOPROLOL SUCCINATE [Concomitant]
     Active Substance: METOPROLOL SUCCINATE
     Dosage: 4275 MG
     Route: 065
  49. METOPROLOL SUCCINATE [Concomitant]
     Active Substance: METOPROLOL SUCCINATE
     Indication: Hypertension
     Dosage: DAILY DOSE: 95 MG MILLIGRAM(S) EVERY DAY
     Route: 048
     Dates: start: 20160901
  50. MIRTAZAPINE [Concomitant]
     Active Substance: MIRTAZAPINE
     Indication: Depression
     Dosage: DAILY DOSE: 15 MG MILLIGRAM(S) EVERY DAY
     Route: 048
     Dates: start: 20160901
  51. PIPERACILLIN [Concomitant]
     Active Substance: PIPERACILLIN
     Indication: Oropharyngeal pain
     Dosage: DAILY DOSE: 12 G GRAM(S) EVERY DAY
     Route: 042
     Dates: start: 20161019
  52. RIVAROXABAN [Concomitant]
     Active Substance: RIVAROXABAN
     Indication: Oedema peripheral
     Dosage: DAILY DOSE: 15 MG MILLIGRAM(S) EVERY DAY
     Route: 048
     Dates: start: 20161012
  53. SULFAMETHOXAZOLE\TRIMETHOPRIM [Concomitant]
     Active Substance: SULFAMETHOXAZOLE\TRIMETHOPRIM
     Indication: Infection prophylaxis
     Dosage: 1-0-1, ONLY MO+THU
     Route: 048
     Dates: start: 20161027
  54. LEVOFLOXACIN [Concomitant]
     Active Substance: LEVOFLOXACIN
     Indication: Infection prophylaxis
     Dosage: DAILY DOSE: 500 MG MILLIGRAM(S) EVERY 3 DAY
     Route: 048
     Dates: start: 20161017, end: 20161019
  55. LEVOFLOXACIN [Concomitant]
     Active Substance: LEVOFLOXACIN
     Dosage: UNK
     Route: 065
  56. LEVOFLOXACIN [Concomitant]
     Active Substance: LEVOFLOXACIN
     Dosage: UNK
     Route: 065
  57. LEVOFLOXACIN [Concomitant]
     Active Substance: LEVOFLOXACIN
     Dosage: UNK
     Route: 065
  58. LEVOFLOXACIN [Concomitant]
     Active Substance: LEVOFLOXACIN
     Dosage: UNK
     Route: 065
  59. LEVOFLOXACIN [Concomitant]
     Active Substance: LEVOFLOXACIN
     Dosage: UNK
     Route: 065
  60. LEVOFLOXACIN [Concomitant]
     Active Substance: LEVOFLOXACIN
     Dosage: UNK
     Route: 065
  61. LEVOFLOXACIN [Concomitant]
     Active Substance: LEVOFLOXACIN
     Dosage: UNK
     Route: 065
  62. LEVOFLOXACIN [Concomitant]
     Active Substance: LEVOFLOXACIN
     Dosage: UNK
     Route: 065
  63. TAZOBACTAM [Concomitant]
     Active Substance: TAZOBACTAM
     Indication: Oropharyngeal pain
     Dosage: DAILY DOSE: 1500 MG MILLIGRAM(S) EVERY DAY
     Route: 042
     Dates: start: 20161019
  64. TORSEMIDE [Concomitant]
     Active Substance: TORSEMIDE
     Dosage: 10 MG QD
     Route: 065
     Dates: start: 20160901
  65. TORSEMIDE [Concomitant]
     Active Substance: TORSEMIDE
     Indication: Cardiac failure
     Dosage: 20 MILLIGRAM, QD
     Route: 048
     Dates: start: 20161012
  66. TORSEMIDE [Concomitant]
     Active Substance: TORSEMIDE
     Dosage: 5 MG2 TIMES A DAY(S) FOR 41 DAY(S), 20MG MILLIGRAM(S), 1 TIMES A DAY(S)
     Route: 048
     Dates: start: 20160901
  67. TORSEMIDE [Concomitant]
     Active Substance: TORSEMIDE
     Dosage: UNK
     Route: 065
     Dates: start: 20160901
  68. TORSEMIDE [Concomitant]
     Active Substance: TORSEMIDE
     Dosage: UNK
     Route: 065
     Dates: start: 20160901
  69. TORSEMIDE [Concomitant]
     Active Substance: TORSEMIDE
     Dosage: UNK
     Route: 065
  70. TORSEMIDE [Concomitant]
     Active Substance: TORSEMIDE
     Dosage: UNK
     Route: 065
  71. TORSEMIDE [Concomitant]
     Active Substance: TORSEMIDE
     Dosage: UNK
     Route: 065
  72. TORSEMIDE [Concomitant]
     Active Substance: TORSEMIDE
     Dosage: UNK
     Route: 065
  73. TORSEMIDE [Concomitant]
     Active Substance: TORSEMIDE
     Dosage: UNK
     Route: 065
  74. ZOPICLONE [Concomitant]
     Active Substance: ZOPICLONE
     Indication: Sleep disorder
     Dosage: 0-0-0-1
     Route: 048
     Dates: start: 20161107

REACTIONS (15)
  - Pneumonia [Fatal]
  - Gait inability [Unknown]
  - Loss of consciousness [Unknown]
  - Dysphagia [Not Recovered/Not Resolved]
  - Spinal fracture [Not Recovered/Not Resolved]
  - Hypokalaemia [Recovered/Resolved]
  - Weight decreased [Not Recovered/Not Resolved]
  - Dehydration [Recovered/Resolved]
  - Fatigue [Not Recovered/Not Resolved]
  - Anaemia [Recovered/Resolved]
  - Leukopenia [Recovered/Resolved]
  - Thrombocytopenia [Recovered/Resolved]
  - Asthenia [Unknown]
  - Constipation [Recovered/Resolved]
  - Streptococcal infection [Recovered/Resolved]

NARRATIVE: CASE EVENT DATE: 20161001
